FAERS Safety Report 5672582-3 (Version None)
Quarter: 2008Q1

REPORT INFORMATION
  Report Type: 
  Country: None (occurrence: None)
  Receive Date: 20080319
  Receipt Date: 20080310
  Transmission Date: 20080703
  Serious: Yes (Other)
  Sender: FDA-Public Use
  Company Number: PHEH2006US00792

PATIENT

DRUGS (11)
  1. TAXOTERE [Concomitant]
     Dosage: 52 MG, UNK
     Route: 042
     Dates: start: 20040830, end: 20041019
  2. KYTRIL [Concomitant]
     Dates: start: 20050405
  3. AMOXICILLIN [Concomitant]
     Dates: start: 20050325
  4. GEMZAR [Concomitant]
     Dosage: 1750-1780MG
     Route: 042
     Dates: start: 20050701, end: 20051021
  5. GEMZAR [Concomitant]
     Dosage: 1750-1790MG
     Route: 042
     Dates: start: 20050128, end: 20050617
  6. CLEOCIN HYDROCHLORIDE [Concomitant]
     Dosage: 300 MG, UNK
     Dates: start: 20050901
  7. ZOMETA [Suspect]
     Dosage: 4 MG, QD
     Dates: start: 20040801, end: 20041201
  8. ZOMETA [Suspect]
     Dosage: 4 MG, QD
     Dates: start: 20050420, end: 20051007
  9. CELEXA [Concomitant]
  10. SYNTHROID [Concomitant]
  11. NAVELBINE [Concomitant]

REACTIONS (15)
  - ALVEOLOPLASTY [None]
  - BONE DISORDER [None]
  - BREATH ODOUR [None]
  - DENTAL OPERATION [None]
  - DENTAL TREATMENT [None]
  - GINGIVAL DISORDER [None]
  - GINGIVAL PAIN [None]
  - HYPOAESTHESIA [None]
  - IMPAIRED HEALING [None]
  - ORAL PAIN [None]
  - OSTEONECROSIS [None]
  - PARAESTHESIA [None]
  - SWELLING [None]
  - TOOTH ABSCESS [None]
  - TOOTH EXTRACTION [None]
